FAERS Safety Report 19665852 (Version 1)
Quarter: 2021Q3

REPORT INFORMATION
  Report Type: Spontaneous
  Country: US (occurrence: US)
  Receive Date: 20210805
  Receipt Date: 20210805
  Transmission Date: 20211014
  Serious: Yes (Other)
  Sender: FDA-Public Use
  Company Number: None

PATIENT
  Age: 30 Year
  Sex: Female
  Weight: 137.02 kg

DRUGS (7)
  1. CPAP AUTO?TRITATE THERAPY [Concomitant]
  2. PROPANOLOL 60MG [Concomitant]
  3. OMEPRAZOLE 40MG [Concomitant]
     Active Substance: OMEPRAZOLE
  4. ESCITALOPRAM [Concomitant]
     Active Substance: ESCITALOPRAM OXALATE
  5. PHENTERMINE 37.5MG [Concomitant]
     Active Substance: PHENTERMINE
  6. MELATONIN 10MG [Concomitant]
  7. CHANTIX [Suspect]
     Active Substance: VARENICLINE TARTRATE
     Indication: SMOKING CESSATION THERAPY
     Dosage: ?          QUANTITY:1 TABLET(S);?
     Route: 048
     Dates: start: 20210512, end: 20210518

REACTIONS (4)
  - Anxiety [None]
  - Depression [None]
  - Initial insomnia [None]
  - Nightmare [None]

NARRATIVE: CASE EVENT DATE: 20210518
